FAERS Safety Report 20300244 (Version 1)
Quarter: 2022Q1

REPORT INFORMATION
  Report Type: Spontaneous
  Country: US (occurrence: None)
  Receive Date: 20220105
  Receipt Date: 20220105
  Transmission Date: 20220423
  Serious: No
  Sender: FDA-Public Use
  Company Number: None

PATIENT
  Age: 52 Year
  Sex: Female

DRUGS (3)
  1. SOTROVIMAB [Suspect]
     Active Substance: SOTROVIMAB
     Indication: Product used for unknown indication
     Dosage: OTHER FREQUENCY : ONE TIME?
     Route: 042
     Dates: start: 20220104, end: 20220104
  2. CYMBALTA [Concomitant]
     Active Substance: DULOXETINE HYDROCHLORIDE
  3. LOVASTATIN [Concomitant]
     Active Substance: LOVASTATIN

REACTIONS (1)
  - Anosmia [None]

NARRATIVE: CASE EVENT DATE: 20220104
